FAERS Safety Report 6152592-2 (Version None)
Quarter: 2009Q2

REPORT INFORMATION
  Report Type: 
  Country: None (occurrence: None)
  Receive Date: 20090413
  Receipt Date: 20090331
  Transmission Date: 20091009
  Serious: No
  Sender: FDA-Public Use
  Company Number: US-ELI_LILLY_AND_COMPANY-US200903005473

PATIENT
  Sex: Female

DRUGS (10)
  1. CYMBALTA [Suspect]
     Indication: DEPRESSION
     Dosage: 30 MG, UNK
     Route: 048
     Dates: start: 20080918, end: 20081003
  2. CYMBALTA [Suspect]
     Dosage: 60 MG, UNK
     Route: 048
     Dates: start: 20081003, end: 20090227
  3. DARVOCET-N 100 [Concomitant]
     Indication: BACK PAIN
     Dosage: 60 MG, AS NEEDED
     Route: 048
  4. VICODIN [Concomitant]
     Indication: PAIN
     Dosage: 40 MG, AS NEEDED
     Route: 048
  5. FLEXERIL [Concomitant]
     Indication: MYALGIA
     Dosage: 1 D/F, AS NEEDED
     Route: 048
  6. PROAIR HFA [Concomitant]
     Indication: ASTHMA
  7. ADVAIR HFA [Concomitant]
     Indication: ASTHMA
  8. REQUIP [Concomitant]
     Indication: RESTLESS LEGS SYNDROME
  9. SINGULAIR [Concomitant]
     Indication: ASTHMA
  10. NICOTINE [Concomitant]

REACTIONS (1)
  - LIVER FUNCTION TEST ABNORMAL [None]
